FAERS Safety Report 7864493-X (Version None)
Quarter: 2011Q4

REPORT INFORMATION
  Report Type: 
  Country: None (occurrence: None)
  Receive Date: 20111026
  Receipt Date: 20111018
  Transmission Date: 20120403
  Serious: Yes (Hospitalization)
  Sender: FDA-Public Use
  Company Number: 2011SP034998

PATIENT
  Age: 26 Year
  Sex: Female

DRUGS (7)
  1. LOVENOX [Concomitant]
  2. FERROUS SULFATE TAB [Concomitant]
  3. CERAZETTE (DESOGESTREL /00754001/) [Suspect]
     Indication: PRODUCT USED FOR UNKNOWN INDICATION
     Dates: start: 20100522
  4. NOVOSEVEN [Suspect]
     Indication: HAEMORRHAGE
     Dosage: 7 MG;QD;IV
     Route: 042
     Dates: start: 20100520, end: 20100520
  5. NALADOR (SULPROSTONE) [Suspect]
     Indication: HAEMORRHAGE
     Dosage: IV
     Route: 042
     Dates: start: 20100519, end: 20100519
  6. CLOTTAFACT (FACTOR I (FIBRINOGEN)) [Suspect]
     Indication: HAEMORRHAGE
     Dosage: 5 DF;IV
     Route: 042
     Dates: start: 20100519, end: 20100519
  7. RESTORVOL (ELOHES /01279201/) [Suspect]
     Indication: PRODUCT USED FOR UNKNOWN INDICATION
     Dosage: 2 L;QD;IV
     Route: 042
     Dates: start: 20100520, end: 20100520

REACTIONS (3)
  - NECROSIS ISCHAEMIC [None]
  - UTERINE DISORDER [None]
  - METRORRHAGIA [None]
